FAERS Safety Report 17722512 (Version 10)
Quarter: 2020Q4

REPORT INFORMATION
  Report Type: Spontaneous
  Country: US (occurrence: US)
  Receive Date: 20200429
  Receipt Date: 20201124
  Transmission Date: 20210113
  Serious: Yes (Other)
  Sender: FDA-Public Use
  Company Number: US-PFIZER INC-2020172143

PATIENT
  Age: 58 Year
  Sex: Male
  Weight: 70.31 kg

DRUGS (14)
  1. DILANTIN [Suspect]
     Active Substance: PHENYTOIN
     Dosage: 200 MG, ONCE A DAY (IN THE MORNING)
     Route: 048
  2. PHENOBARBITAL. [Concomitant]
     Active Substance: PHENOBARBITAL
     Dosage: 60 MG, 2X/DAY, (1 ORALLY 2 TIMES A DAY, ACTIVE)
     Route: 048
  3. PHENOBARBITAL. [Concomitant]
     Active Substance: PHENOBARBITAL
     Dosage: 64.8 MG, 2X/DAY, (64.8 MG BID (TWO TIMES A DAY)
  4. FEMARA [Concomitant]
     Active Substance: LETROZOLE
     Dosage: 2.5 MG, 1X/DAY, (1 ORALLY ONCE A DAY, ACTIVE)
     Route: 048
  5. B-COMPLEX [VITAMIN B COMPLEX] [Concomitant]
     Dosage: 50 MG, 1X/DAY, (1 ORALLY ONCE A DAY, ACTIVE)
     Route: 048
  6. DILANTIN [Suspect]
     Active Substance: PHENYTOIN
     Dosage: 200 MG, ONCE A DAY (IN THE EVENING ON SUNDAY, TUESDAY)
     Route: 048
  7. CLARITIN REDITABS [Concomitant]
     Active Substance: LORATADINE
     Dosage: 10 MG, 1X/DAY, (1 ORALLY ONCE A DAY, ACTIVE)
     Route: 048
  8. DILANTIN [Suspect]
     Active Substance: PHENYTOIN
     Indication: SEIZURE
     Dosage: 200 MG, TWICE A DAY (2 CAPSULES; EXCEPT WEDNESDAY)
     Route: 048
  9. FOSAMAX [Concomitant]
     Active Substance: ALENDRONATE SODIUM
     Dosage: 70 MG, 1X/DAY, (1 ORALLY ONCE A WEEK, ACTIVE)
     Route: 048
  10. FLAXSEED [Concomitant]
     Active Substance: FLAX SEED
     Dosage: 1 DF, 2X/DAY, (1 ORALLY 2 TIMES A DAY, ACTIVE)
     Route: 048
  11. DILANTIN [Suspect]
     Active Substance: PHENYTOIN
     Dosage: 300 MG, ONCE A DAY (IN THE EVENING ON MONDAY, WEDNESDAY, AND FRIDAY)
     Route: 048
  12. DILANTIN [Suspect]
     Active Substance: PHENYTOIN
     Dosage: 200 MG, 2X/DAY
     Route: 048
  13. GARLIC [ALLIUM SATIVUM] [Concomitant]
     Active Substance: GARLIC
     Dosage: 1 DF, 1X/DAY, (1 ORALLY ONCE A DAY, ACTIVE)
     Route: 048
  14. DILANTIN [Suspect]
     Active Substance: PHENYTOIN
     Indication: EPILEPSY
     Dosage: 100 MG, TWICE A DAY (1 CAPSULE)
     Route: 048

REACTIONS (8)
  - Anticonvulsant drug level below therapeutic [Recovered/Resolved]
  - Disturbance in attention [Unknown]
  - Hypoacusis [Unknown]
  - Generalised tonic-clonic seizure [Unknown]
  - Anxiety [Unknown]
  - Exercise lack of [Unknown]
  - Confusional state [Unknown]
  - Thinking abnormal [Unknown]

NARRATIVE: CASE EVENT DATE: 20110723
